FAERS Safety Report 5292064-0 (Version None)
Quarter: 2007Q2

REPORT INFORMATION
  Report Type: 
  Country: None (occurrence: None)
  Receive Date: 20070406
  Receipt Date: 20070406
  Transmission Date: 20071010
  Serious: Yes (Hospitalization)
  Sender: FDA-Public Use
  Company Number: None

PATIENT
  Sex: Female
  Weight: 52.73 kg

DRUGS (2)
  1. CISPLATIN [Suspect]
     Dosage: 79 MG
  2. TOPOTECAN [Suspect]
     Dosage: .94 MG

REACTIONS (5)
  - HYPOKALAEMIA [None]
  - HYPONATRAEMIA [None]
  - NAUSEA [None]
  - PANCYTOPENIA [None]
  - VOMITING [None]
